FAERS Safety Report 4577022-3 (Version None)
Quarter: 2005Q1

REPORT INFORMATION
  Report Type: 
  Country: None (occurrence: None)
  Receive Date: 20050208
  Receipt Date: 20050125
  Transmission Date: 20050727
  Serious: Yes (Death, Life-Threatening)
  Sender: FDA-Public Use
  Company Number: 04H-163-0282262-00

PATIENT
  Age: 92 Year
  Sex: Male

DRUGS (5)
  1. VANCOMYCIN [Suspect]
     Indication: DRUG USE FOR UNKNOWN INDICATION
     Dosage: 1000 MG, GIVEN ONCE EVERY FIFTEEN MINUTES, INTRVENOUS BOLUS
     Route: 040
     Dates: start: 20041130, end: 20041130
  2. OXYGEN [Concomitant]
  3. EPOETIN ALFA [Concomitant]
  4. DOXERCALCIFEROL [Concomitant]
  5. HEPARIN [Concomitant]

REACTIONS (8)
  - CARDIAC ARREST [None]
  - DEVICE FAILURE [None]
  - HYPOTENSION [None]
  - MEDICATION ERROR [None]
  - PULSE ABNORMAL [None]
  - PULSE ABSENT [None]
  - PULSE PRESSURE DECREASED [None]
  - VENTRICULAR FIBRILLATION [None]
